FAERS Safety Report 12937074 (Version 1)
Quarter: 2016Q4

REPORT INFORMATION
  Report Type: Spontaneous
  Country: FR (occurrence: FR)
  Receive Date: 20161114
  Receipt Date: 20161114
  Transmission Date: 20170207
  Serious: Yes (Other)
  Sender: FDA-Public Use
  Company Number: PHHY2016FR153785

PATIENT
  Age: 44 Year
  Sex: Female

DRUGS (2)
  1. PREDNISONE. [Suspect]
     Active Substance: PREDNISONE
     Indication: DEMYELINATION
     Dosage: 1 MG/KG, 5 DAYS FOLLOWED BY TAPERING DOSE DURING 10 DAYS
     Route: 048
  2. METHYLPREDNISOLONE. [Suspect]
     Active Substance: METHYLPREDNISOLONE
     Indication: DEMYELINATION
     Dosage: 1 G, QD
     Route: 042

REACTIONS (1)
  - Cognitive disorder [Not Recovered/Not Resolved]
